FAERS Safety Report 9723673 (Version 1)
Quarter: 2013Q4

REPORT INFORMATION
  Report Type: Spontaneous
  Country: PL (occurrence: PL)
  Receive Date: 20131202
  Receipt Date: 20131202
  Transmission Date: 20140711
  Serious: Yes (Hospitalization)
  Sender: FDA-Public Use
  Company Number: PL-GLAXOSMITHKLINE-B0948551A

PATIENT
  Age: 8 Month
  Sex: Female
  Weight: 7.5 kg

DRUGS (1)
  1. ZINNAT [Suspect]
     Indication: ANGINA PECTORIS
     Dosage: 3ML TWICE PER DAY
     Route: 048
     Dates: start: 20131110

REACTIONS (3)
  - Convulsion [Unknown]
  - Epilepsy [Unknown]
  - Somnolence [Unknown]
